FAERS Safety Report 5862802-4 (Version None)
Quarter: 2008Q3

REPORT INFORMATION
  Report Type: 
  Country: None (occurrence: None)
  Receive Date: 20080818
  Receipt Date: 20080703
  Transmission Date: 20090109
  Serious: No
  Sender: FDA-Public Use
  Company Number: WAES 0807USA00812

PATIENT
  Age: 63 Year
  Sex: Female

DRUGS (12)
  1. JANUVIA [Suspect]
     Indication: DIABETES MELLITUS
     Dosage: 100 MG/DAILY/PO
     Route: 048
     Dates: start: 20080609, end: 20080626
  2. DILANTIN [Concomitant]
  3. DIOVAN [Concomitant]
  4. LASIX [Concomitant]
  5. NORVASC [Concomitant]
  6. CLONIDINE [Concomitant]
  7. GLYBURIDE [Concomitant]
  8. LEVOTHYROXINE SODIUM [Concomitant]
  9. METFORMIN HCL [Concomitant]
  10. POTASSIUM CHLORIDE [Concomitant]
  11. PRAVASTATIN SODIUM [Concomitant]
  12. SERTRALINE HYDROCHLORIDE [Concomitant]

REACTIONS (5)
  - AGGRESSION [None]
  - ANGER [None]
  - HALLUCINATION [None]
  - MENTAL STATUS CHANGES [None]
  - SCREAMING [None]
